FAERS Safety Report 4353063-6 (Version None)
Quarter: 2004Q2

REPORT INFORMATION
  Report Type: 
  Country: None (occurrence: None)
  Receive Date: 20040429
  Receipt Date: 20040420
  Transmission Date: 20050107
  Serious: Yes (Other)
  Sender: FDA-Public Use
  Company Number: JP-JNJFOC-20040405408

PATIENT
  Age: 49 Year
  Sex: Male

DRUGS (3)
  1. HALDOL DECANOATE (HALOPERIDOL DECANOATE) [Suspect]
     Indication: SCHIZOPHRENIA
     Dosage: 50 MG, 1 IN 4 WEEK, ORAL
     Route: 048
  2. HALDOL [Suspect]
     Indication: SCHIZOPHRENIA
     Dosage: 10-12 MG DAILY
  3. BIPERIDEN HYDROCHLORIDE TAB [Concomitant]

REACTIONS (8)
  - CATATONIA [None]
  - DYSURIA [None]
  - HYPERHIDROSIS [None]
  - INAPPROPRIATE AFFECT [None]
  - MICTURITION URGENCY [None]
  - MUTISM [None]
  - OCULOGYRATION [None]
  - STARING [None]
